FAERS Safety Report 5588706-2 (Version None)
Quarter: 2008Q1

REPORT INFORMATION
  Report Type: 
  Country: None (occurrence: None)
  Receive Date: 20080111
  Receipt Date: 20080103
  Transmission Date: 20080703
  Serious: Yes (Other)
  Sender: FDA-Public Use
  Company Number: B0359821A

PATIENT
  Age: 39 Year
  Sex: Male

DRUGS (1)
  1. SEROXAT [Suspect]
     Indication: DEPRESSION
     Dosage: 20MG UNKNOWN
     Route: 065
     Dates: start: 19970812

REACTIONS (7)
  - AGGRESSION [None]
  - DIZZINESS [None]
  - HYPERHIDROSIS [None]
  - MOOD SWINGS [None]
  - NIGHTMARE [None]
  - PARAESTHESIA [None]
  - WITHDRAWAL SYNDROME [None]
